FAERS Safety Report 5849509-4 (Version None)
Quarter: 2008Q3

REPORT INFORMATION
  Report Type: 
  Country: None (occurrence: None)
  Receive Date: 20080819
  Receipt Date: 20080815
  Transmission Date: 20090109
  Serious: Yes (Life-Threatening, Hospitalization, Other)
  Sender: FDA-Public Use
  Company Number: A0740727A

PATIENT
  Age: 32 Year
  Sex: Female

DRUGS (5)
  1. LAMICTAL [Suspect]
     Indication: BIPOLAR DISORDER
     Dosage: 125MG TWICE PER DAY
     Route: 048
     Dates: start: 20080124
  2. LEXAPRO [Concomitant]
     Dosage: 20MG PER DAY
  3. WELLBUTRIN XL [Concomitant]
     Dosage: 450MG PER DAY
  4. BUSPIRONE HCL [Concomitant]
     Dosage: 20MG THREE TIMES PER DAY
  5. CARBAMAZEPINE [Concomitant]
     Dosage: 200MG TWICE PER DAY

REACTIONS (2)
  - RASH [None]
  - ULCER [None]
